FAERS Safety Report 9296236 (Version 1)
Quarter: 2013Q2

REPORT INFORMATION
  Report Type: Spontaneous
  Country: US (occurrence: US)
  Receive Date: 20130517
  Receipt Date: 20130517
  Transmission Date: 20140414
  Serious: Yes (Hospitalization)
  Sender: FDA-Public Use
  Company Number: US-INCYTE CORPORATION-2013IN000972

PATIENT
  Age: 93 Year
  Sex: Female

DRUGS (4)
  1. JAKAFI [Suspect]
     Indication: MYELOFIBROSIS
     Dosage: 5 MG, BID
     Route: 048
     Dates: end: 201305
  2. LISINOPRIL [Concomitant]
  3. LEVOTHYROXINE [Concomitant]
  4. IRON [Concomitant]

REACTIONS (1)
  - Haematochezia [Recovering/Resolving]
